FAERS Safety Report 8517413-9 (Version None)
Quarter: 2012Q3

REPORT INFORMATION
  Report Type: 
  Country: None (occurrence: None)
  Receive Date: 20120718
  Receipt Date: 20120716
  Transmission Date: 20120928
  Serious: Yes (Death)
  Sender: FDA-Public Use
  Company Number: ES-ROCHE-1088767

PATIENT
  Age: 49 Year
  Sex: Male

DRUGS (2)
  1. COPEGUS [Suspect]
     Indication: HEPATITIS C
     Route: 048
     Dates: start: 20090119, end: 20090504
  2. PEGASYS [Suspect]
     Indication: HEPATITIS C
     Route: 058
     Dates: start: 20090121, end: 20090504

REACTIONS (2)
  - GASTROINTESTINAL HAEMORRHAGE [None]
  - PANCYTOPENIA [None]
